FAERS Safety Report 7331779-7 (Version None)
Quarter: 2011Q1

REPORT INFORMATION
  Report Type: 
  Country: None (occurrence: None)
  Receive Date: 20110304
  Receipt Date: 20110228
  Transmission Date: 20110831
  Serious: Yes (Death, Hospitalization)
  Sender: FDA-Public Use
  Company Number: SA-SANOFI-AVENTIS-2011SA012147

PATIENT
  Age: 41 Year
  Sex: Male

DRUGS (4)
  1. ENOXAPARIN SODIUM [Suspect]
     Indication: MYOCARDIAL INFARCTION
     Route: 042
  2. ASPIRIN [Suspect]
     Indication: MYOCARDIAL INFARCTION
     Dosage: ORAL CHEWABLE
     Route: 048
  3. CLOPIDOGREL BISULFATE [Suspect]
     Indication: MYOCARDIAL INFARCTION
     Route: 048
  4. ACTIVASE [Suspect]
     Indication: MYOCARDIAL INFARCTION
     Dosage: 15 MG FOLLWED BY 50 MG FOR 30 MINUTES AMD 35 MG FOR 60 MINUTES
     Route: 040

REACTIONS (5)
  - RENAL INFARCT [None]
  - LOSS OF CONSCIOUSNESS [None]
  - CEREBRAL INFARCTION [None]
  - CONFUSIONAL STATE [None]
  - HAEMORRHAGIC TRANSFORMATION STROKE [None]
